FAERS Safety Report 16392658 (Version 2)
Quarter: 2019Q2

REPORT INFORMATION
  Report Type: Spontaneous
  Country: UA (occurrence: UA)
  Receive Date: 20190605
  Receipt Date: 20190611
  Transmission Date: 20190711
  Serious: Yes (Death, Other)
  Sender: FDA-Public Use
  Company Number: UA-ASTRAZENECA-2019SE81673

PATIENT
  Age: 71 Year
  Sex: Female

DRUGS (2)
  1. BRILINTA [Suspect]
     Active Substance: TICAGRELOR
     Indication: ACUTE CORONARY SYNDROME
     Dosage: 90.0MG ONCE/SINGLE ADMINISTRATION
     Route: 048
     Dates: start: 20190411, end: 20190416
  2. BRILINTA [Suspect]
     Active Substance: TICAGRELOR
     Indication: ACUTE CORONARY SYNDROME
     Dosage: 180.0MG ONCE/SINGLE ADMINISTRATION
     Route: 048

REACTIONS (7)
  - Acute kidney injury [Unknown]
  - Occult blood [Unknown]
  - Red blood cells urine [Unknown]
  - Dyspnoea [Unknown]
  - Papillary muscle disorder [Unknown]
  - Pulmonary embolism [Fatal]
  - Haemoglobin decreased [Unknown]
